FAERS Safety Report 15832461 (Version 1)
Quarter: 2019Q1

REPORT INFORMATION
  Report Type: Report from Study
  Country: US (occurrence: US)
  Receive Date: 20190116
  Receipt Date: 20190116
  Transmission Date: 20190417
  Serious: Yes (Death, Other)
  Sender: FDA-Public Use
  Company Number: US-BAYER-2019-008498

PATIENT
  Age: 43 Year
  Sex: Male

DRUGS (1)
  1. ASPIRIN. [Suspect]
     Active Substance: ASPIRIN
     Indication: PREOPERATIVE CARE
     Dosage: 325 MG, QD

REACTIONS (6)
  - Intraventricular haemorrhage [Fatal]
  - Hydrocephalus [None]
  - Off label use [None]
  - Cerebrovascular accident [None]
  - Product use in unapproved indication [None]
  - Subarachnoid haemorrhage [Fatal]
